FAERS Safety Report 26016194 (Version 1)
Quarter: 2025Q4

REPORT INFORMATION
  Report Type: Spontaneous
  Country: US (occurrence: US)
  Receive Date: 20251110
  Receipt Date: 20251110
  Transmission Date: 20260117
  Serious: No
  Sender: AUROBINDO
  Company Number: US-AUROBINDO-AUR-APL-2025-044534

PATIENT
  Sex: Male

DRUGS (1)
  1. FOLOTYN [Suspect]
     Active Substance: PRALATREXATE
     Indication: Haematological malignancy
     Dosage: 1 INFUSION WEEKLY FOR 3 WEEKS AND THEN IS OFF FOR A WEEK
     Route: 065
     Dates: start: 20250505

REACTIONS (2)
  - Fatigue [Unknown]
  - Rash [Unknown]
